FAERS Safety Report 8873840 (Version 1)
Quarter: 2012Q4

REPORT INFORMATION
  Report Type: 
  Country: SE (occurrence: SE)
  Receive Date: 20121030
  Receipt Date: 20121030
  Transmission Date: 20130627
  Serious: Yes (Life-Threatening)
  Sender: FDA-Public Use
  Company Number: SE-BRISTOL-MYERS SQUIBB COMPANY-17040411

PATIENT
  Age: 30 Year
  Sex: Female

DRUGS (1)
  1. POTASSIUM CHLORIDE [Suspect]
     Dosage: 300 potassium chloride 750 mg slow release tabs
     Route: 048

REACTIONS (13)
  - Intentional overdose [Unknown]
  - Suicide attempt [Unknown]
  - Hyperkalaemia [Recovered/Resolved]
  - Somnolence [None]
  - Feeling abnormal [None]
  - Blood pressure decreased [None]
  - Haemodialysis [None]
  - Bezoar [None]
  - Duodenal stenosis [None]
  - Impaired gastric emptying [None]
  - Pulmonary embolism [None]
  - Tachycardia [None]
  - Haemodialysis [None]
